FAERS Safety Report 13650640 (Version 1)
Quarter: 2017Q2

REPORT INFORMATION
  Report Type: Spontaneous
  Country: US (occurrence: US)
  Receive Date: 20170614
  Receipt Date: 20170614
  Transmission Date: 20170830
  Serious: No
  Sender: FDA-Public Use
  Company Number: US-ENDO PHARMACEUTICALS INC-2017-000772

PATIENT
  Age: 12 Year
  Sex: Male

DRUGS (1)
  1. SUPPRELIN LA [Suspect]
     Active Substance: HISTRELIN ACETATE
     Indication: PRECOCIOUS PUBERTY
     Dosage: UNK, UNKNOWN
     Route: 065
     Dates: start: 2015

REACTIONS (5)
  - Incorrect drug administration duration [Not Recovered/Not Resolved]
  - Temperature regulation disorder [Unknown]
  - Therapeutic response unexpected [Unknown]
  - Anxiety [Unknown]
  - Nervousness [Unknown]

NARRATIVE: CASE EVENT DATE: 2016
